FAERS Safety Report 25280252 (Version 1)
Quarter: 2025Q2

REPORT INFORMATION
  Report Type: Report from Study
  Country: US (occurrence: US)
  Receive Date: 20250507
  Receipt Date: 20250507
  Transmission Date: 20250717
  Serious: Yes (Hospitalization)
  Sender: ALEXION PHARMACEUTICALS
  Company Number: US-ASTRAZENECA-202505USA000694US

PATIENT

DRUGS (1)
  1. OLAPARIB [Suspect]
     Active Substance: OLAPARIB
     Indication: Ovarian cancer
     Dosage: 100 MILLIGRAM, BID

REACTIONS (5)
  - Confusional state [Unknown]
  - Vomiting [Unknown]
  - Oxygen saturation decreased [Unknown]
  - Underdose [Unknown]
  - Product dose omission issue [Unknown]
